FAERS Safety Report 9008315 (Version 3)
Quarter: 2013Q2

REPORT INFORMATION
  Report Type: Spontaneous
  Country: IT (occurrence: IT)
  Receive Date: 20130111
  Receipt Date: 20130405
  Transmission Date: 20140414
  Serious: Yes (Disabling)
  Sender: FDA-Public Use
  Company Number: PHHY2013IT002366

PATIENT
  Sex: Female

DRUGS (4)
  1. ZOMETA [Suspect]
     Indication: PLASMA CELL MYELOMA
     Dosage: 4 MG, MONTHLY
     Route: 042
     Dates: start: 20020101, end: 20021201
  2. ZOMETA [Suspect]
     Dosage: 4 MG, UNK
     Dates: start: 20030601, end: 20060201
  3. AUGMENTIN                               /UNK/ [Concomitant]
  4. METRONIDAZOLE [Concomitant]

REACTIONS (1)
  - Osteonecrosis of jaw [Unknown]
